FAERS Safety Report 5386227-3 (Version None)
Quarter: 2007Q3

REPORT INFORMATION
  Report Type: 
  Country: None (occurrence: None)
  Receive Date: 20070713
  Receipt Date: 20070705
  Transmission Date: 20080115
  Serious: Yes (Hospitalization, Disabling, Other)
  Sender: FDA-Public Use
  Company Number: HQWYE622518APR07

PATIENT
  Sex: Female
  Weight: 49 kg

DRUGS (3)
  1. LEVONORGESTREL AND ETHINYL ESTRADIOL [Suspect]
     Indication: OVARIAN FAILURE
     Route: 048
     Dates: start: 20000101, end: 20050101
  2. LEVONORGESTREL AND ETHINYL ESTRADIOL [Suspect]
     Route: 048
     Dates: start: 20060101, end: 20070411
  3. SENNA LEAF [Concomitant]
     Indication: CONSTIPATION
     Route: 048
     Dates: start: 20000101

REACTIONS (3)
  - HEADACHE [None]
  - MUSCULOSKELETAL STIFFNESS [None]
  - OPTIC ATROPHY [None]
